FAERS Safety Report 17097832 (Version 3)
Quarter: 2021Q1

REPORT INFORMATION
  Report Type: Spontaneous
  Country: US (occurrence: US)
  Receive Date: 20191202
  Receipt Date: 20210125
  Transmission Date: 20210419
  Serious: Yes (Other)
  Sender: FDA-Public Use
  Company Number: US-MYLANLABS-2019M1114326

PATIENT
  Age: 62 Year
  Sex: Male
  Weight: 104 kg

DRUGS (25)
  1. SENOKOT [Concomitant]
     Active Substance: SENNOSIDES
     Dosage: UNK
  2. SPIRONOLACTONE. [Concomitant]
     Active Substance: SPIRONOLACTONE
     Dosage: 25 MILLIGRAM
  3. AMIODARONE [Concomitant]
     Active Substance: AMIODARONE
     Dosage: 400 MILLIGRAM
  4. LEXAPRO [Concomitant]
     Active Substance: ESCITALOPRAM OXALATE
     Dosage: 20 MILLIGRAM
  5. ATORVASTIN [Concomitant]
     Active Substance: ATORVASTATIN
     Dosage: 40 MILLIGRAM THE NIGHT BEFORE
  6. HEPARIN SODIUM INJECTION USP [Suspect]
     Active Substance: HEPARIN SODIUM
     Indication: CORONARY ARTERY BYPASS
  7. CLOPIDOGREL [Concomitant]
     Active Substance: CLOPIDOGREL BISULFATE
     Dosage: 75 MILLIGRAM
  8. FOLIC ACID. [Concomitant]
     Active Substance: FOLIC ACID
     Dosage: 1 MILLIGRAM
  9. MIDAZOLAM. [Concomitant]
     Active Substance: MIDAZOLAM
     Dosage: 3 MILLIGRAM
  10. NITROGLYCERIN. [Concomitant]
     Active Substance: NITROGLYCERIN
     Dosage: 200 MICROGRAM
  11. NEPHROCAPS                         /01801401/ [Concomitant]
     Dosage: UNK
  12. DUONEB [Concomitant]
     Active Substance: ALBUTEROL SULFATE\IPRATROPIUM BROMIDE
  13. LORAZEPAM. [Concomitant]
     Active Substance: LORAZEPAM
     Dosage: 1:21 AM AND 12 :30 IV
  14. HEPARIN SODIUM INJECTION USP [Suspect]
     Active Substance: HEPARIN SODIUM
     Indication: PERCUTANEOUS CORONARY INTERVENTION
     Dosage: UNK
     Route: 042
     Dates: start: 20191120, end: 20191120
  15. ASPIRIN                            /00002701/ [Concomitant]
     Active Substance: ASPIRIN
     Dosage: UNK
  16. THIAMINE. [Concomitant]
     Active Substance: THIAMINE
     Dosage: 100 MILLIGRAM
  17. HEPARIN SODIUM INJECTION USP [Suspect]
     Active Substance: HEPARIN SODIUM
     Indication: MEDICAL PROCEDURE
     Dosage: 10000 UNITS PER 10 ML
     Dates: start: 20191120, end: 20191120
  18. DIAZEPAM. [Concomitant]
     Active Substance: DIAZEPAM
     Dosage: 5 MILLIGRAM
  19. FUROSEMIDE. [Concomitant]
     Active Substance: FUROSEMIDE
     Dosage: 20 MILLIGRAM
  20. LOSARTAN. [Concomitant]
     Active Substance: LOSARTAN
     Dosage: 100 MILLIGRAM
  21. PROTONIX                           /00661201/ [Concomitant]
     Active Substance: OMEPRAZOLE
     Dosage: 40 MILLIGRAM
  22. TAMSULOSIN [Concomitant]
     Active Substance: TAMSULOSIN
     Dosage: 0.4 MILLIGRAM
  23. FENTANYL. [Concomitant]
     Active Substance: FENTANYL
     Dosage: 150 MICROGRAM
  24. NICARDIPINE [Concomitant]
     Active Substance: NICARDIPINE
     Dosage: 100 MICROGRAM
  25. NITROGLYCERIN. [Concomitant]
     Active Substance: NITROGLYCERIN
     Dosage: 100 MICROGRAM

REACTIONS (3)
  - Heparin resistance [Recovering/Resolving]
  - Therapeutic product effect decreased [Recovered/Resolved]
  - Extra dose administered [Recovering/Resolving]

NARRATIVE: CASE EVENT DATE: 20191120
